FAERS Safety Report 8297649-5 (Version None)
Quarter: 2012Q2

REPORT INFORMATION
  Report Type: 
  Country: None (occurrence: None)
  Receive Date: 20120419
  Receipt Date: 20120418
  Transmission Date: 20120825
  Serious: Yes (Death, Other)
  Sender: FDA-Public Use
  Company Number: CN-PFIZER INC-2012089768

PATIENT
  Age: 14 Year
  Sex: Male

DRUGS (2)
  1. LOW MOLECULAR WEIGHT HEPARIN SODIUM [Suspect]
     Dosage: ONCE DAILY
  2. SOLU-MEDROL [Suspect]
     Dosage: 40 MG, 2X/DAY

REACTIONS (2)
  - DISSEMINATED INTRAVASCULAR COAGULATION [None]
  - HAEMORRHAGE [None]
